FAERS Safety Report 12661311 (Version 2)
Quarter: 2016Q3

REPORT INFORMATION
  Report Type: Spontaneous
  Country: US (occurrence: US)
  Receive Date: 20160817
  Receipt Date: 20160901
  Transmission Date: 20161109
  Serious: No
  Sender: FDA-Public Use
  Company Number: US-RELYPSA-RLY2016000822

PATIENT
  Age: 69 Year
  Sex: Male

DRUGS (18)
  1. VICTOZA [Concomitant]
     Active Substance: LIRAGLUTIDE
  2. ACARBOSE 1 A PHARMA [Concomitant]
  3. HYDROCODONE BITARTRATE AND ACETAMINOPHEN [Concomitant]
     Active Substance: ACETAMINOPHEN\HYDROCODONE BITARTRATE
  4. VITAMIN D                          /00107901/ [Concomitant]
     Active Substance: ERGOCALCIFEROL
  5. GLIPIZIDE. [Concomitant]
     Active Substance: GLIPIZIDE
  6. METOPROLOL SUCCINATE. [Concomitant]
     Active Substance: METOPROLOL SUCCINATE
  7. VELTASSA [Suspect]
     Active Substance: PATIROMER
     Indication: RENAL DISORDER
     Dosage: 8.4 G, Q.D.
     Route: 048
     Dates: start: 2016
  8. HYDROCHLOROTHIAZIDE. [Concomitant]
     Active Substance: HYDROCHLOROTHIAZIDE
  9. CILOSTAZOL. [Concomitant]
     Active Substance: CILOSTAZOL
  10. ASPIRIN                            /00002701/ [Concomitant]
     Active Substance: ASPIRIN
  11. FERROUS SULFATE. [Concomitant]
     Active Substance: FERROUS SULFATE
  12. JANUVIA [Concomitant]
     Active Substance: SITAGLIPTIN PHOSPHATE
  13. PRAVASTATIN. [Concomitant]
     Active Substance: PRAVASTATIN
  14. SODIUM BICARBONATE. [Concomitant]
     Active Substance: SODIUM BICARBONATE
  15. ZETIA [Concomitant]
     Active Substance: EZETIMIBE
  16. CLOPIDOGREL [Concomitant]
     Active Substance: CLOPIDOGREL BISULFATE
  17. LISINOPRIL. [Concomitant]
     Active Substance: LISINOPRIL
  18. NIACIN. [Concomitant]
     Active Substance: NIACIN

REACTIONS (2)
  - Blood creatinine increased [Unknown]
  - Blood glucose decreased [Unknown]
